FAERS Safety Report 8262923 (Version 2)
Quarter: 2013Q4

REPORT INFORMATION
  Report Type: Spontaneous
  Country: US (occurrence: US)
  Receive Date: 20111125
  Receipt Date: 20131105
  Transmission Date: 20140711
  Serious: Yes (Other)
  Sender: FDA-Public Use
  Company Number: US-ROCHE-791826

PATIENT
  Age: 14 Year
  Sex: Male
  Weight: 136.2 kg

DRUGS (3)
  1. ACCUTANE [Suspect]
     Indication: ACNE
     Route: 048
     Dates: start: 19980126, end: 199806
  2. ACCUTANE [Suspect]
     Route: 048
     Dates: start: 199901, end: 199903
  3. ACCUTANE [Suspect]
     Route: 048

REACTIONS (5)
  - Colitis ulcerative [Unknown]
  - Inflammatory bowel disease [Unknown]
  - Anal fissure [Unknown]
  - Blood triglycerides increased [Unknown]
  - Epistaxis [Unknown]
